FAERS Safety Report 26011775 (Version 2)
Quarter: 2025Q4

REPORT INFORMATION
  Report Type: Report from Study
  Country: CA (occurrence: CA)
  Receive Date: 20251107
  Receipt Date: 20251127
  Transmission Date: 20260118
  Serious: Yes (Hospitalization, Other)
  Sender: TAKEDA
  Company Number: CA-TAKEDA-2025TUS019024

PATIENT
  Age: 55 Year
  Sex: Female

DRUGS (6)
  1. VEDOLIZUMAB [Suspect]
     Active Substance: VEDOLIZUMAB
     Indication: Crohn^s disease
     Dosage: 300 MILLIGRAM
  2. VEDOLIZUMAB [Suspect]
     Active Substance: VEDOLIZUMAB
     Dosage: 300 MILLIGRAM
  3. VEDOLIZUMAB [Suspect]
     Active Substance: VEDOLIZUMAB
     Dosage: 300 MILLIGRAM
  4. BUDESONIDE [Concomitant]
     Active Substance: BUDESONIDE
     Dosage: 9 MILLIGRAM
  5. ENTOCORT [Concomitant]
     Active Substance: BUDESONIDE
     Dosage: 9 MILLIGRAM
  6. Cortiment [Concomitant]
     Dosage: 9 MILLIGRAM

REACTIONS (21)
  - Migraine [Unknown]
  - Intestinal fistula [Unknown]
  - Post procedural complication [Unknown]
  - Pyrexia [Unknown]
  - Faeces soft [Unknown]
  - Diarrhoea [Unknown]
  - Infusion site extravasation [Unknown]
  - Procedural nausea [Unknown]
  - Procedural vomiting [Unknown]
  - Hernia [Unknown]
  - Sneezing [Unknown]
  - Oesophagitis [Unknown]
  - Frequent bowel movements [Unknown]
  - Abdominal pain [Unknown]
  - Malaise [Unknown]
  - Nasal congestion [Unknown]
  - Vomiting [Unknown]
  - Headache [Unknown]
  - Cough [Unknown]
  - Nausea [Unknown]
  - Nasopharyngitis [Unknown]

NARRATIVE: CASE EVENT DATE: 20250903
